FAERS Safety Report 8987647 (Version 1)
Quarter: 2012Q4

REPORT INFORMATION
  Report Type: 
  Country: US (occurrence: US)
  Receive Date: 20121227
  Receipt Date: 20121227
  Transmission Date: 20130627
  Serious: No
  Sender: FDA-Public Use
  Company Number: US-ASTRAZENECA-2012SE93614

PATIENT
  Age: 56 Year
  Sex: Female
  Weight: 63.5 kg

DRUGS (8)
  1. CRESTOR [Suspect]
     Indication: BLOOD CHOLESTEROL
     Route: 048
     Dates: start: 2010, end: 201209
  2. COREG [Concomitant]
     Indication: CARDIAC DISORDER
  3. ENALAPRIL [Concomitant]
     Indication: HYPERTENSION
  4. HUMULIN INSULIN [Concomitant]
     Indication: DIABETES MELLITUS
  5. HUMALOG [Concomitant]
     Indication: DIABETES MELLITUS
  6. PROMETHAZINE [Concomitant]
     Indication: NAUSEA
  7. PLAVIX [Concomitant]
     Indication: ANGIOPATHY
  8. SYNTHROID [Concomitant]
     Indication: THYROID DISORDER

REACTIONS (1)
  - Intentional drug misuse [Not Recovered/Not Resolved]
